FAERS Safety Report 9405819 (Version 2)
Quarter: 2013Q4

REPORT INFORMATION
  Report Type: Spontaneous
  Country: GB (occurrence: GB)
  Receive Date: 20130717
  Receipt Date: 20131031
  Transmission Date: 20140711
  Serious: Yes (Other)
  Sender: FDA-Public Use
  Company Number: GB-TEVA-418689ISR

PATIENT
  Age: 61 Year
  Sex: Female
  Weight: 166 kg

DRUGS (11)
  1. SERTRALINE [Suspect]
     Indication: DEPRESSION
     Route: 048
  2. SERTRALINE [Suspect]
     Route: 048
  3. OMEPRAZOLE [Concomitant]
  4. ESTRADIOL [Concomitant]
     Dosage: FORM OF ADMIN: PESSARY
  5. LEVOTHYROXINE SODIUM [Concomitant]
  6. MONTELUKAST [Concomitant]
  7. SALBUTAMOL [Concomitant]
  8. SYMBICORT [Concomitant]
  9. FLIXONASE AQUEOUS [Concomitant]
  10. COD LIVER OIL [Concomitant]
  11. PROCHLORPERAZINE MALEATE [Concomitant]

REACTIONS (8)
  - Gastroenteritis norovirus [Unknown]
  - Vomiting [Recovering/Resolving]
  - Malaise [Recovering/Resolving]
  - Gastrointestinal disorder [Unknown]
  - Insomnia [Unknown]
  - Psychomotor hyperactivity [Unknown]
  - Psychomotor hyperactivity [Unknown]
  - Diarrhoea [Recovering/Resolving]
